FAERS Safety Report 7129879-X (Version None)
Quarter: 2010Q4

REPORT INFORMATION
  Report Type: 
  Country: None (occurrence: None)
  Receive Date: 20101130
  Receipt Date: 20101013
  Transmission Date: 20110411
  Serious: Yes (Hospitalization)
  Sender: FDA-Public Use
  Company Number: US-AMGEN LTD.-QUU443488

PATIENT

DRUGS (5)
  1. NPLATE [Suspect]
     Indication: THROMBOCYTOPENIA
     Dosage: 89 A?G, UNK
     Route: 058
     Dates: start: 20100503, end: 20100730
  2. IMMU-G [Concomitant]
     Dosage: UNK UNK, UNK
     Dates: start: 20090209, end: 20100118
  3. PREDNISONE [Concomitant]
     Dosage: UNK UNK, UNK
     Dates: start: 20091207, end: 20100106
  4. CORTICOSTEROID NOS [Concomitant]
     Dosage: UNK UNK, UNK
     Dates: start: 20091207, end: 20100106
  5. IMMUNOGLOBULIN HUMAN NORMAL [Concomitant]
     Dosage: UNK UNK, UNK
     Dates: start: 20091209, end: 20100118

REACTIONS (1)
  - SURGERY [None]
